FAERS Safety Report 17850070 (Version 3)
Quarter: 2020Q3

REPORT INFORMATION
  Report Type: Other
  Country: US (occurrence: US)
  Receive Date: 20200602
  Receipt Date: 20200728
  Transmission Date: 20201103
  Serious: Yes (Hospitalization, Other)
  Sender: FDA-Public Use
  Company Number: US-ROCHE-2159287

PATIENT
  Sex: Male
  Weight: 77.18 kg

DRUGS (5)
  1. ERIVEDGE [Suspect]
     Active Substance: VISMODEGIB
     Indication: BASAL CELL CARCINOMA
  2. ERIVEDGE [Suspect]
     Active Substance: VISMODEGIB
     Indication: BASAL CELL CARCINOMA
     Dosage: ONGOING: NO, FOR 20 DAYS  THEN STOP FOR 10 DAYS REPEAT EVERY 30 DAY
     Route: 048
     Dates: start: 2017, end: 201910
  3. ERIVEDGE [Suspect]
     Active Substance: VISMODEGIB
     Indication: BASAL CELL CARCINOMA
     Dosage: TAKE 1 CAPSULE DAILY FOR 20 DAYS  THEN STOP FOR 10 DAYS REPEAT EVERY 30 DAY
     Route: 048
  4. ERIVEDGE [Suspect]
     Active Substance: VISMODEGIB
     Indication: BASAL CELL CARCINOMA
  5. ERIVEDGE [Suspect]
     Active Substance: VISMODEGIB
     Indication: BASAL CELL CARCINOMA
     Dosage: LOWERED DOSE ;ONGOING: UNKNOWN
     Route: 048
     Dates: start: 201910

REACTIONS (7)
  - Muscle spasms [Recovered/Resolved]
  - Ageusia [Unknown]
  - Decreased appetite [Unknown]
  - Pneumonia [Unknown]
  - Basal cell carcinoma [Recovered/Resolved]
  - Alopecia [Unknown]
  - Muscle spasms [Unknown]

NARRATIVE: CASE EVENT DATE: 2017
